FAERS Safety Report 4496507-1 (Version None)
Quarter: 2004Q3

REPORT INFORMATION
  Report Type: 
  Country: None (occurrence: None)
  Receive Date: 20040923
  Receipt Date: 20040723
  Transmission Date: 20050211
  Serious: Yes (Other)
  Sender: FDA-Public Use
  Company Number: 2004050569

PATIENT
  Age: 54 Year
  Sex: Male

DRUGS (3)
  1. ZYRTEC [Suspect]
     Indication: RHINITIS ALLERGIC
     Dosage: 10 MG
     Dates: start: 20020101
  2. ZYRTEC [Suspect]
  3. LOTREL [Concomitant]

REACTIONS (2)
  - DIABETES MELLITUS NON-INSULIN-DEPENDENT [None]
  - LYMPHADENOPATHY [None]
